FAERS Safety Report 12596804 (Version 1)
Quarter: 2016Q3

REPORT INFORMATION
  Report Type: Spontaneous
  Country: US (occurrence: US)
  Receive Date: 20160727
  Receipt Date: 20160727
  Transmission Date: 20161109
  Serious: No
  Sender: FDA-Public Use
  Company Number: PHEH2016US018598

PATIENT
  Sex: Female
  Weight: 60.78 kg

DRUGS (1)
  1. AFINITOR [Suspect]
     Active Substance: EVEROLIMUS
     Indication: CARCINOID TUMOUR
     Dosage: 10 MG, QD (28 DAYS)
     Route: 048
     Dates: start: 20160429

REACTIONS (1)
  - Epistaxis [Unknown]
